FAERS Safety Report 11700421 (Version 1)
Quarter: 2015Q4

REPORT INFORMATION
  Report Type: Spontaneous
  Country: US (occurrence: None)
  Receive Date: 20151104
  Receipt Date: 20151104
  Transmission Date: 20160304
  Serious: No
  Sender: FDA-Public Use
  Company Number: None

PATIENT
  Age: 47 Year
  Sex: Female
  Weight: 81.65 kg

DRUGS (8)
  1. BENADRYL [Concomitant]
     Active Substance: DIPHENHYDRAMINE HYDROCHLORIDE
  2. HAIR, SKIN AND NAILS VITAMIN [Concomitant]
  3. PANTOPRAZOLE [Concomitant]
     Active Substance: PANTOPRAZOLE SODIUM
  4. VENLAFAXINE ER [Concomitant]
     Active Substance: VENLAFAXINE HYDROCHLORIDE
  5. STOOL SOFTENERS [Concomitant]
     Active Substance: UNSPECIFIED INGREDIENT
  6. (TCHA) PROM/ZOLM/TIZA IN LIDOCAI ATHENA PHARMACY [Suspect]
     Active Substance: LIDOCAINE\PRILOCAINE\PROMETHAZINE\TIZANIDINE\ZOLMITRIPTAN
     Indication: MUSCULOSKELETAL DISCOMFORT
     Dosage: 1 TO 2 PUMPS?APPLIED TO A SURFACE, USUALLY THE SKIN
     Route: 061
     Dates: start: 20151024
  7. LOSARTAN/HCTZ [Concomitant]
     Active Substance: HYDROCHLOROTHIAZIDE\LOSARTAN
  8. ZRYTEC [Concomitant]

REACTIONS (5)
  - Restlessness [None]
  - Blood pressure increased [None]
  - Hallucination [None]
  - Insomnia [None]
  - Heart rate increased [None]

NARRATIVE: CASE EVENT DATE: 20151024
